FAERS Safety Report 16839493 (Version 1)
Quarter: 2019Q3

REPORT INFORMATION
  Report Type: Other
  Country: BE (occurrence: BE)
  Receive Date: 20190923
  Receipt Date: 20190923
  Transmission Date: 20191005
  Serious: Yes (Hospitalization)
  Sender: FDA-Public Use
  Company Number: BE-COVIS PHARMA B.V.-2019COV00236

PATIENT
  Sex: Female

DRUGS (5)
  1. AMOXICILLINE CLAVULAANZUUR [Suspect]
     Active Substance: AMOXICILLIN\CLAVULANIC ACID
     Route: 048
  2. FLAGYL [Suspect]
     Active Substance: METRONIDAZOLE\METRONIDAZOLE HYDROCHLORIDE
  3. CLARITHROMYCIN. [Suspect]
     Active Substance: CLARITHROMYCIN
  4. OMEPRAZOLE MAGNESIUM. [Suspect]
     Active Substance: OMEPRAZOLE MAGNESIUM
     Route: 048
  5. ENTEROL (SACCHAROMYCES BOULARDI) [Suspect]
     Active Substance: SACCHAROMYCES CEREVISIAE

REACTIONS (2)
  - Language disorder [Unknown]
  - Dry mouth [Unknown]
